FAERS Safety Report 11434122 (Version 1)
Quarter: 2015Q3

REPORT INFORMATION
  Report Type: Spontaneous
  Country: US (occurrence: None)
  Receive Date: 20150828
  Receipt Date: 20150828
  Transmission Date: 20151125
  Serious: No
  Sender: FDA-Public Use
  Company Number: None

PATIENT
  Sex: Female

DRUGS (5)
  1. COLI [Concomitant]
  2. XOPENEX [Concomitant]
     Active Substance: LEVALBUTEROL HYDROCHLORIDE
  3. BETHKIS [Suspect]
     Active Substance: TOBRAMYCIN
     Indication: CYSTIC FIBROSIS
     Dates: start: 20150402
  4. PULMOZYME [Suspect]
     Active Substance: DORNASE ALFA
     Dates: start: 20131108
  5. ACETYSTEINE [Concomitant]

REACTIONS (1)
  - Lung disorder [None]
